FAERS Safety Report 7767313-7 (Version None)
Quarter: 2011Q3

REPORT INFORMATION
  Report Type: 
  Country: None (occurrence: None)
  Receive Date: 20110922
  Receipt Date: 20100521
  Transmission Date: 20111222
  Serious: No
  Sender: FDA-Public Use
  Company Number: US-ASTRAZENECA-2010SE50918

PATIENT
  Age: 43 Year
  Sex: Male
  Weight: 81.6 kg

DRUGS (4)
  1. NEURONTIN [Concomitant]
     Dates: start: 20000817
  2. SEROQUEL [Suspect]
     Dosage: 25 MG TID, 200 MG QHS
     Route: 048
     Dates: start: 20000817
  3. PRILOSEC [Concomitant]
     Dates: start: 20020401
  4. PAXIL [Concomitant]
     Dates: start: 20000817

REACTIONS (2)
  - HEPATITIS C [None]
  - TYPE 2 DIABETES MELLITUS [None]
